FAERS Safety Report 4631025-9 (Version None)
Quarter: 2005Q2

REPORT INFORMATION
  Report Type: 
  Country: None (occurrence: None)
  Receive Date: 20050406
  Receipt Date: 20050318
  Transmission Date: 20051028
  Serious: Yes (Hospitalization, Disabling, Other)
  Sender: FDA-Public Use
  Company Number: USA020414476

PATIENT
  Age: 39 Year
  Sex: Male
  Weight: 0.077 kg

DRUGS (18)
  1. ZYPREXA [Suspect]
     Indication: DEPRESSION
     Dosage: 5 MG AT BEDTIME
     Dates: start: 19990101, end: 20010701
  2. PAXIL [Concomitant]
  3. CONCERTA [Concomitant]
  4. EFFEXOR [Concomitant]
  5. DITROPAN [Concomitant]
  6. HALDOL (HALOPERIDOL DECANOATE) [Concomitant]
  7. COGENTIN [Concomitant]
  8. GLUCOPHAGE [Concomitant]
  9. ATIVAN [Concomitant]
  10. DEPAKOTE [Concomitant]
  11. NIASPAN (NICOTONIC ACID) [Concomitant]
  12. RISPERIDONE [Concomitant]
  13. SINGULAIR (MONTELUKAST) [Concomitant]
  14. LAMICTAL [Concomitant]
  15. TOLTERODINE TARTRATE [Concomitant]
  16. SEROQUEL [Concomitant]
  17. CELEBREX [Concomitant]
  18. CLONAZEPAM [Concomitant]

REACTIONS (43)
  - ANGER [None]
  - ANXIETY [None]
  - ATTENTION DEFICIT/HYPERACTIVITY DISORDER [None]
  - BLADDER DISORDER [None]
  - BRONCHOSPASM [None]
  - CONDITION AGGRAVATED [None]
  - COUGH [None]
  - CRYING [None]
  - DEHYDRATION [None]
  - DIABETES MELLITUS [None]
  - DIPLOPIA [None]
  - DRY MOUTH [None]
  - FEELING ABNORMAL [None]
  - FEELING GUILTY [None]
  - FEELING JITTERY [None]
  - FEELINGS OF WORTHLESSNESS [None]
  - HALLUCINATION, AUDITORY [None]
  - HEADACHE [None]
  - HYPERTRIGLYCERIDAEMIA [None]
  - HYPOAESTHESIA [None]
  - INSOMNIA [None]
  - JOB DISSATISFACTION [None]
  - LETHARGY [None]
  - LOSS OF EMPLOYMENT [None]
  - MAJOR DEPRESSION [None]
  - MIDDLE INSOMNIA [None]
  - NEUROGENIC BLADDER [None]
  - NIGHTMARE [None]
  - OBSESSIVE-COMPULSIVE DISORDER [None]
  - PSYCHIATRIC SYMPTOM [None]
  - PSYCHOTIC DISORDER [None]
  - SELF ESTEEM DECREASED [None]
  - SEXUAL DYSFUNCTION [None]
  - SINUS BRADYCARDIA [None]
  - SOCIAL AVOIDANT BEHAVIOUR [None]
  - SOMNOLENCE [None]
  - SUICIDAL IDEATION [None]
  - THINKING ABNORMAL [None]
  - TINEA PEDIS [None]
  - VERTIGO [None]
  - VISION BLURRED [None]
  - WEIGHT DECREASED [None]
  - WHEEZING [None]
